FAERS Safety Report 13154988 (Version 2)
Quarter: 2017Q1

REPORT INFORMATION
  Report Type: Spontaneous
  Country: NL (occurrence: NL)
  Receive Date: 20170126
  Receipt Date: 20170223
  Transmission Date: 20170428
  Serious: Yes (Life-Threatening, Hospitalization, Other)
  Sender: FDA-Public Use
  Company Number: NL-MYLANLABS-2017M1003892

PATIENT
  Age: 63 Year
  Sex: Male

DRUGS (3)
  1. SODIUM CHLORIDE. [Concomitant]
     Active Substance: SODIUM CHLORIDE
     Indication: TACHYCARDIA
     Dosage: RESUCITATED WITH INTRAVENOUS SALINE AND INTRAVENOUS FLUID CHALLANGE
     Route: 042
  2. TRANEXAMIC ACID. [Suspect]
     Active Substance: TRANEXAMIC ACID
     Route: 042
  3. ACENOCOUMAROL [Suspect]
     Active Substance: ACENOCOUMAROL
     Indication: DEEP VEIN THROMBOSIS
     Dosage: OVERDOSE
     Route: 065

REACTIONS (4)
  - Haemorrhagic hepatic cyst [Recovered/Resolved]
  - Overdose [Recovered/Resolved]
  - Hypovolaemic shock [Recovered/Resolved]
  - Hepatic cyst ruptured [Recovered/Resolved]
